FAERS Safety Report 7368597-X (Version None)
Quarter: 2011Q1

REPORT INFORMATION
  Report Type: 
  Country: None (occurrence: None)
  Receive Date: 20110310
  Receipt Date: 20110222
  Transmission Date: 20110831
  Serious: Yes (Other)
  Sender: FDA-Public Use
  Company Number: 2011SP009368

PATIENT
  Age: 56 Year
  Sex: Female

DRUGS (4)
  1. ETOPOSIDE [Concomitant]
  2. CISPLATIN [Concomitant]
  3. ARACYTIN [Concomitant]
  4. METHYLPREDNISOLONE ACEPONATE (METHYLPREDNISOLONE ACEPONATE /00049605/) [Suspect]
     Indication: WALDENSTROM'S MACROGLOBULINAEMIA
     Dosage: 625 MG;QD;IV
     Route: 042

REACTIONS (2)
  - BIPOLAR DISORDER [None]
  - PSYCHOTIC DISORDER [None]
